FAERS Safety Report 10158696 (Version 1)
Quarter: 2014Q2

REPORT INFORMATION
  Report Type: Spontaneous
  Country: US (occurrence: US)
  Receive Date: 20140508
  Receipt Date: 20140508
  Transmission Date: 20141212
  Serious: No
  Sender: FDA-Public Use
  Company Number: US-BIOGENIDEC-2013BI084369

PATIENT
  Age: 46 Year
  Sex: Male

DRUGS (1)
  1. TECFIDERA [Suspect]
     Indication: MULTIPLE SCLEROSIS
     Route: 048
     Dates: start: 20130819

REACTIONS (9)
  - Nasopharyngitis [Unknown]
  - Oral herpes [Unknown]
  - Malaise [Unknown]
  - Abdominal distension [Unknown]
  - Feeling abnormal [Unknown]
  - Quality of life decreased [Unknown]
  - Influenza [Unknown]
  - Flushing [Unknown]
  - Feeling hot [Unknown]
